FAERS Safety Report 9528756 (Version 1)
Quarter: 2013Q3

REPORT INFORMATION
  Report Type: Spontaneous
  Country: US (occurrence: US)
  Receive Date: 20130917
  Receipt Date: 20130917
  Transmission Date: 20140515
  Serious: No
  Sender: FDA-Public Use
  Company Number: US-BANPHARM-20131176

PATIENT
  Age: 85 Year
  Sex: Female
  Weight: 64.41 kg

DRUGS (1)
  1. ZYRTEC LIQUID GELS 10 MG [Suspect]
     Route: 048

REACTIONS (2)
  - Therapeutic response unexpected with drug substitution [Unknown]
  - Drug ineffective [Unknown]
